FAERS Safety Report 9494423 (Version 3)
Quarter: 2014Q1

REPORT INFORMATION
  Report Type: Spontaneous
  Country: JP (occurrence: JP)
  Receive Date: 20130903
  Receipt Date: 20140205
  Transmission Date: 20141002
  Serious: Yes (Hospitalization, Other)
  Sender: FDA-Public Use
  Company Number: PHHY2013JP094181

PATIENT
  Age: 32 Year
  Sex: Female

DRUGS (18)
  1. APRESOLIN [Suspect]
     Indication: HYPERTENSION
     Dosage: 40 MG, DAILY
     Route: 048
  2. APRESOLIN [Suspect]
     Dosage: 60 MG, DAILY
     Route: 048
  3. APRESOLIN [Suspect]
     Dosage: 90 MG, DAILY
     Route: 048
  4. APRESOLIN [Suspect]
     Dosage: 120 MG, DAILY
     Route: 048
  5. APRESOLIN [Suspect]
     Dosage: 60 MG, DAILY
     Route: 048
  6. APRESOLIN [Suspect]
     Dosage: 100 UG/MIN
     Route: 042
  7. APRESOLIN [Suspect]
     Dosage: 167 UG/MIN
     Route: 042
  8. NICARDIPINE [Suspect]
     Dosage: 1 UG/KGMIN
  9. NICARDIPINE [Suspect]
     Dosage: 0.5 UG/KG/MIN
  10. METHYLDOPA [Suspect]
     Indication: HYPERTENSION
     Dosage: 750 MG, DAILY
     Route: 048
  11. METHYLDOPA [Suspect]
     Dosage: 1000 MG, DAILY
     Route: 048
  12. METHYLDOPA [Suspect]
     Dosage: 750 MG, DAILY
     Route: 048
  13. NIFEDIPINE [Suspect]
     Indication: HYPERTENSION
     Dosage: 20 MG, DAILY
     Route: 048
  14. NIFEDIPINE [Suspect]
     Dosage: 10 MG, DAILY
     Route: 048
  15. FRESH FROZEN PLASMA-LEUKOCYTES REDUCED [Concomitant]
     Dosage: 4 DF TWICE WEEKLY
     Route: 041
  16. FRESH FROZEN PLASMA-LEUKOCYTES REDUCED [Concomitant]
     Dosage: 5 DF, DAILY
     Route: 041
  17. FRESH FROZEN PLASMA-LEUKOCYTES REDUCED [Concomitant]
     Dosage: 2 DF, DAILY
     Route: 041
  18. FRESH FROZEN PLASMA-LEUKOCYTES REDUCED [Concomitant]
     Dosage: 2 DF, DAILY
     Route: 041

REACTIONS (11)
  - Renal impairment [Unknown]
  - Condition aggravated [Unknown]
  - Oedema [Recovering/Resolving]
  - Foetal growth restriction [Unknown]
  - Umbilical cord vascular disorder [Unknown]
  - Premature delivery [Unknown]
  - Platelet count decreased [Unknown]
  - Blood pressure inadequately controlled [Recovering/Resolving]
  - Nausea [Unknown]
  - Low birth weight baby [Unknown]
  - Maternal exposure during pregnancy [Unknown]
